FAERS Safety Report 12159583 (Version 2)
Quarter: 2016Q1

REPORT INFORMATION
  Report Type: Report from Study
  Country: US (occurrence: US)
  Receive Date: 20160308
  Receipt Date: 20160324
  Transmission Date: 20160526
  Serious: Yes (Hospitalization, Other)
  Sender: FDA-Public Use
  Company Number: US-GILEAD-2016-0201248

PATIENT
  Age: 81 Year
  Sex: Male
  Weight: 84.3 kg

DRUGS (12)
  1. COLACE [Concomitant]
     Active Substance: DOCUSATE SODIUM
     Indication: CONSTIPATION
     Dosage: 100 MG, UNK
  2. FLONASE                            /00908302/ [Concomitant]
     Active Substance: MOMETASONE FUROATE
     Dosage: 50 UG, UNK
     Route: 045
  3. INSULIN ASPART [Concomitant]
     Active Substance: INSULIN ASPART
     Dosage: 2 UNITS BEFORE EACH MEAL, 3 UNITS PRIOR TO EVENING MEAL
     Route: 058
  4. FERROUS SULFATE [Concomitant]
     Active Substance: FERROUS SULFATE\FERROUS SULFATE, DRIED
     Dosage: 325 MG, UNK
  5. CENTRUM SILVER                     /02363801/ [Concomitant]
     Active Substance: MINERALS\VITAMINS
  6. FEXOFENADINE [Concomitant]
     Active Substance: FEXOFENADINE\FEXOFENADINE HYDROCHLORIDE
     Dosage: 180 MG, UNK
  7. LANTUS [Concomitant]
     Active Substance: INSULIN GLARGINE
     Dosage: 9 IU, QHS
     Route: 058
  8. IDELALISIB [Suspect]
     Active Substance: IDELALISIB
     Indication: B-CELL LYMPHOMA
     Dosage: 150 MG, QD
     Route: 048
     Dates: start: 20141117
  9. RITUXIMAB [Suspect]
     Active Substance: RITUXIMAB
     Indication: B-CELL LYMPHOMA
     Dosage: 800 MG, Q1MONTH
     Route: 042
     Dates: start: 20141117, end: 20150720
  10. DANAZOL. [Concomitant]
     Active Substance: DANAZOL
     Dosage: 50 MG, UNK
  11. SENNA-S                            /00936101/ [Concomitant]
  12. ASPIRIN                            /00002701/ [Concomitant]
     Active Substance: ASPIRIN
     Dosage: 81 MG, QD

REACTIONS (3)
  - Otitis externa [Recovered/Resolved]
  - Febrile neutropenia [Recovered/Resolved]
  - Sepsis [Recovered/Resolved]

NARRATIVE: CASE EVENT DATE: 20160228
